FAERS Safety Report 26184104 (Version 1)
Quarter: 2025Q4

REPORT INFORMATION
  Report Type: Spontaneous
  Country: US (occurrence: US)
  Receive Date: 20251222
  Receipt Date: 20251222
  Transmission Date: 20260117
  Serious: Yes (Other)
  Sender: CIPLA
  Company Number: US-CIPLA LTD.-2025US15832

PATIENT

DRUGS (8)
  1. ALENDRONATE [Suspect]
     Active Substance: ALENDRONATE SODIUM
     Indication: Bone density abnormal
     Dosage: 15 YEARS OR LONGER, ONE TABLET ONCE A WEEK ON SUNDAY MORNINGS
     Route: 048
  2. ALENDRONATE [Suspect]
     Active Substance: ALENDRONATE SODIUM
     Dosage: ONE TABLET ONCE A WEEK ON SUNDAY MORNINGS
     Route: 048
     Dates: start: 20251207
  3. METHIMAZOLE [Suspect]
     Active Substance: METHIMAZOLE
     Indication: Product used for unknown indication
     Dosage: ONE TABLET A DAY, 5 MILLIGRAM
     Route: 065
  4. VITAMIN B12 [Concomitant]
     Active Substance: CYANOCOBALAMIN
     Indication: Thyroid disorder
     Dosage: 1200 MILLIGRAM, ONE PILL EVERY OTHER DAY
     Route: 065
  5. EZETIMIBE [Concomitant]
     Active Substance: EZETIMIBE
     Indication: Product used for unknown indication
     Dosage: TAKE ONE TABLET BY MOUTH EVERY MORNING.
     Route: 048
  6. AMLODIPINE [Concomitant]
     Active Substance: AMLODIPINE BESYLATE
     Indication: Blood pressure measurement
     Dosage: 2.5 MILLIGRAM, UNK
     Route: 065
  7. DUTASTERIDE [Concomitant]
     Active Substance: DUTASTERIDE
     Indication: Alopecia
     Dosage: 0.5 MILLIGRAM, ONCE BY MOUTH ONCE A DAY, STARTED 2 WEEKS AGO
     Route: 048
  8. ASPIRIN [Concomitant]
     Active Substance: ASPIRIN
     Indication: Product used for unknown indication
     Dosage: ONE PILL A DAY, A MONTH AGO
     Route: 065

REACTIONS (2)
  - Dementia [Not Recovered/Not Resolved]
  - Product administration error [Unknown]

NARRATIVE: CASE EVENT DATE: 20251207
